FAERS Safety Report 9648511 (Version 1)
Quarter: 2013Q4

REPORT INFORMATION
  Report Type: Spontaneous
  Country: US (occurrence: US)
  Receive Date: 20131028
  Receipt Date: 20131028
  Transmission Date: 20140711
  Serious: Yes (Other)
  Sender: FDA-Public Use
  Company Number: US-JNJFOC-20131012163

PATIENT
  Sex: Female

DRUGS (3)
  1. DURAGESIC [Suspect]
     Indication: TUMOUR PAIN
     Route: 062
     Dates: start: 2008, end: 2012
  2. DURAGESIC [Suspect]
     Indication: TUMOUR PAIN
     Dosage: 100 UG/HR + 50 UG/HR
     Route: 062
     Dates: start: 2012, end: 201306
  3. DURAGESIC [Suspect]
     Indication: TUMOUR PAIN
     Route: 062
     Dates: start: 1997, end: 2008

REACTIONS (4)
  - Hearing impaired [Not Recovered/Not Resolved]
  - Adverse event [Not Recovered/Not Resolved]
  - Somnolence [Recovered/Resolved]
  - Drug ineffective [Not Recovered/Not Resolved]
